FAERS Safety Report 7317310-0 (Version None)
Quarter: 2011Q1

REPORT INFORMATION
  Report Type: 
  Country: None (occurrence: None)
  Receive Date: 20110226
  Receipt Date: 20101022
  Transmission Date: 20110831
  Serious: Yes (Other)
  Sender: FDA-Public Use
  Company Number: US-ALLERGAN-1013603US

PATIENT

DRUGS (2)
  1. BOTOXA? [Suspect]
     Indication: TEMPOROMANDIBULAR JOINT SYNDROME
     Dosage: UNK UNITS Q 3 MONTHS
     Dates: start: 20100101, end: 20100101
  2. SYPRINE [Concomitant]
     Indication: HEPATO-LENTICULAR DEGENERATION
     Dosage: UNK

REACTIONS (3)
  - BRUXISM [None]
  - DYSPHAGIA [None]
  - PAIN IN JAW [None]
